FAERS Safety Report 15627467 (Version 4)
Quarter: 2019Q1

REPORT INFORMATION
  Report Type: Spontaneous
  Country: BR (occurrence: BR)
  Receive Date: 20181116
  Receipt Date: 20190304
  Transmission Date: 20190417
  Serious: Yes (Hospitalization, Other)
  Sender: FDA-Public Use
  Company Number: BR-JNJFOC-20181117958

PATIENT
  Age: 57 Year
  Sex: Male

DRUGS (8)
  1. XARELTO [Suspect]
     Active Substance: RIVAROXABAN
     Indication: THROMBOSIS
     Route: 048
     Dates: start: 20181022, end: 20181121
  2. XARELTO [Suspect]
     Active Substance: RIVAROXABAN
     Indication: THROMBOSIS
     Route: 048
     Dates: start: 20181122, end: 20190122
  3. XARELTO [Suspect]
     Active Substance: RIVAROXABAN
     Indication: THROMBOSIS
     Route: 048
     Dates: start: 20181122, end: 20190122
  4. ENALAPRIL [Concomitant]
     Active Substance: ENALAPRIL
     Indication: HYPERTENSION
     Route: 048
     Dates: start: 1999
  5. XARELTO [Suspect]
     Active Substance: RIVAROXABAN
     Indication: THROMBOSIS
     Route: 048
     Dates: start: 20181022, end: 20181121
  6. HIDANTAL [Interacting]
     Active Substance: PHENYTOIN SODIUM
     Indication: SEIZURE
     Route: 048
     Dates: start: 1998
  7. CLOBAZAM. [Concomitant]
     Active Substance: CLOBAZAM
     Indication: SEIZURE
     Route: 048
     Dates: start: 1998
  8. PHENYTOIN. [Concomitant]
     Active Substance: PHENYTOIN
     Indication: SEIZURE
     Route: 048
     Dates: start: 2004

REACTIONS (13)
  - Intestinal polyp [Unknown]
  - Arthralgia [Unknown]
  - Abdominal distension [Recovered/Resolved]
  - Asthenia [Not Recovered/Not Resolved]
  - Joint swelling [Recovering/Resolving]
  - Oedema peripheral [Unknown]
  - Seizure [Not Recovered/Not Resolved]
  - Gastrointestinal haemorrhage [Unknown]
  - Constipation [Not Recovered/Not Resolved]
  - Off label use [Unknown]
  - Arthralgia [Recovering/Resolving]
  - Constipation [Not Recovered/Not Resolved]
  - Labelled drug-drug interaction medication error [Not Recovered/Not Resolved]

NARRATIVE: CASE EVENT DATE: 201810
